FAERS Safety Report 14798380 (Version 2)
Quarter: 2018Q2

REPORT INFORMATION
  Report Type: Report from Study
  Country: JP (occurrence: JP)
  Receive Date: 20180424
  Receipt Date: 20180604
  Transmission Date: 20180711
  Serious: Yes (Hospitalization, Other)
  Sender: FDA-Public Use
  Company Number: JP-EMD SERONO-E2B_90039597

PATIENT
  Age: 54 Year
  Sex: Male
  Weight: 85 kg

DRUGS (11)
  1. BAVENCIO [Suspect]
     Active Substance: AVELUMAB
     Indication: HEPATOCELLULAR CARCINOMA
     Dosage: 869 MG, EVERY 2 WEEKS
     Route: 042
     Dates: start: 20171227
  2. INLYTA [Suspect]
     Active Substance: AXITINIB
     Dosage: 3 MG, 2X/DAY CONTINUOUS
     Route: 048
     Dates: start: 20180124, end: 20180403
  3. BETAMETHASONE BUTYRATE PROPIONATE/BETAMETHASONE BUTYRATE PROPIONATE [Concomitant]
     Indication: PALMAR-PLANTAR ERYTHRODYSAESTHESIA SYNDROME
  4. DIPHENHYDRAMINE HYDROCHLORIDE/DIPHENHYDRAMINE HYDROCHLORIDE [Concomitant]
     Indication: PREMEDICATION
     Dosage: 20 MG, SINGLE
     Route: 048
     Dates: start: 20180404, end: 20180404
  5. INLYTA [Suspect]
     Active Substance: AXITINIB
     Indication: HEPATOCELLULAR CARCINOMA
     Dosage: 5 MG, 2X/DAY CONTINUOUS
     Route: 048
     Dates: start: 20171227, end: 20180110
  6. HYDROCORTISONE. [Concomitant]
     Active Substance: HYDROCORTISONE
     Indication: ANAL EROSION
     Dosage: UNK, 1X/DAY
     Route: 061
     Dates: start: 20180404, end: 20180405
  7. BETAMETHASONE BUTYRATE PROPIONATE/BETAMETHASONE BUTYRATE PROPIONATE [Concomitant]
     Indication: RASH
     Dosage: UNK UNK, AS NEEDED
     Route: 061
     Dates: start: 20180214, end: 20180406
  8. ACETAMINOPHEN. [Concomitant]
     Active Substance: ACETAMINOPHEN
     Indication: PREMEDICATION
     Dosage: 300 MG, SINGLE
     Route: 048
     Dates: start: 20180404, end: 20180404
  9. CANDESARTAN CILEXETIL. [Concomitant]
     Active Substance: CANDESARTAN CILEXETIL
     Indication: HYPERTENSION
     Dosage: 8 MG, 1X/DAY
     Route: 048
     Dates: start: 20180307, end: 20180403
  10. LOXOPROFEN SODIUM DIHYDRATE/LOXOPROFEN SODIUM HYDRATE [Concomitant]
     Indication: HEADACHE
     Dosage: 60 MG, AS NEEDED
     Route: 048
     Dates: start: 20180412
  11. AMLODIPINE BESILATE [Concomitant]
     Active Substance: AMLODIPINE BESYLATE
     Indication: HYPERTENSION
     Dosage: 5 MG, 1X/DAY
     Route: 048
     Dates: start: 20180307, end: 20180403

REACTIONS (1)
  - Hepatic function abnormal [Recovered/Resolved]

NARRATIVE: CASE EVENT DATE: 20180413
